FAERS Safety Report 5106058-9 (Version None)
Quarter: 2006Q3

REPORT INFORMATION
  Report Type: 
  Country: None (occurrence: None)
  Receive Date: 20060912
  Receipt Date: 20060822
  Transmission Date: 20061208
  Serious: Yes (Death)
  Sender: FDA-Public Use
  Company Number: P200600003

PATIENT
  Age: 87 Year
  Sex: Male

DRUGS (1)
  1. PLENAXIS [Suspect]
     Dosage: 100 MG, SINGLE, INTRAMUSCULAR
     Route: 030
     Dates: start: 20050429, end: 20050429

REACTIONS (1)
  - DISEASE PROGRESSION [None]
